FAERS Safety Report 12078282 (Version 1)
Quarter: 2016Q1

REPORT INFORMATION
  Report Type: Spontaneous
  Country: JP (occurrence: JP)
  Receive Date: 20160215
  Receipt Date: 20160215
  Transmission Date: 20160526
  Serious: Yes (Other)
  Sender: FDA-Public Use
  Company Number: JP-MYLANLABS-2015M1041787

PATIENT

DRUGS (14)
  1. REMIFENTANIL [Suspect]
     Active Substance: REMIFENTANIL
     Indication: ANAESTHESIA PROCEDURE
     Dosage: 0.39 MG, UNK
     Route: 042
  2. ESLAX [Suspect]
     Active Substance: ROCURONIUM BROMIDE
     Indication: HIP SURGERY
  3. FENTANYL. [Suspect]
     Active Substance: FENTANYL
     Indication: HIP SURGERY
  4. ESLAX [Suspect]
     Active Substance: ROCURONIUM BROMIDE
     Indication: GENERAL ANAESTHESIA
     Dosage: 30 ML, UNK
     Route: 042
  5. NITROUS OXIDE. [Suspect]
     Active Substance: NITROUS OXIDE
     Indication: HIP SURGERY
  6. NITROUS OXIDE. [Suspect]
     Active Substance: NITROUS OXIDE
     Indication: GENERAL ANAESTHESIA
     Dosage: 24 L, ONCE
     Route: 055
  7. BRIDION [Suspect]
     Active Substance: SUGAMMADEX
     Indication: GENERAL ANAESTHESIA
     Dosage: 50 MG, UNK
     Route: 042
  8. BRIDION [Suspect]
     Active Substance: SUGAMMADEX
     Indication: HIP SURGERY
  9. FENTANYL. [Suspect]
     Active Substance: FENTANYL
     Indication: ANAESTHESIA PROCEDURE
     Dosage: 60 ML, UNK
     Route: 042
  10. ATROPINE. [Suspect]
     Active Substance: ATROPINE
     Indication: HIP SURGERY
  11. REMIFENTANIL [Suspect]
     Active Substance: REMIFENTANIL
     Indication: HIP SURGERY
  12. ATROPINE. [Suspect]
     Active Substance: ATROPINE
     Indication: GENERAL ANAESTHESIA
     Route: 048
  13. SEVOFLURANE. [Suspect]
     Active Substance: SEVOFLURANE
     Indication: GENERAL ANAESTHESIA
     Dosage: 160 ML, UNK
     Route: 055
  14. SEVOFLURANE. [Suspect]
     Active Substance: SEVOFLURANE
     Indication: HIP SURGERY

REACTIONS (2)
  - Angle closure glaucoma [Recovered/Resolved]
  - Vomiting [Unknown]
